FAERS Safety Report 5682538-2 (Version None)
Quarter: 2008Q1

REPORT INFORMATION
  Report Type: 
  Country: None (occurrence: None)
  Receive Date: 20080327
  Receipt Date: 20071219
  Transmission Date: 20080703
  Serious: No
  Sender: FDA-Public Use
  Company Number: US-BRISTOL-MYERS SQUIBB COMPANY-14024152

PATIENT
  Age: 61 Year
  Sex: Female

DRUGS (1)
  1. DASATINIB [Suspect]
     Indication: METASTATIC MALIGNANT MELANOMA

REACTIONS (4)
  - ARTHRALGIA [None]
  - DYSPNOEA EXERTIONAL [None]
  - FATIGUE [None]
  - PYREXIA [None]
